FAERS Safety Report 5103552-1 (Version None)
Quarter: 2006Q3

REPORT INFORMATION
  Report Type: 
  Country: None (occurrence: None)
  Receive Date: 20060731
  Receipt Date: 20050921
  Transmission Date: 20061208
  Serious: Yes (Hospitalization, Other)
  Sender: FDA-Public Use
  Company Number: US-JNJFOC-20050905381

PATIENT
  Age: 63 Year
  Sex: Male
  Weight: 108.8633 kg

DRUGS (2)
  1. RISPERDAL CONSTA [Suspect]
     Indication: PSYCHOTIC DISORDER
     Dosage: INTRAMUSCULAR
     Route: 030
     Dates: start: 20050911
  2. RISPERDAL [Suspect]
     Indication: SCHIZOPHRENIA
     Dates: start: 19990101

REACTIONS (2)
  - HALLUCINATION [None]
  - TARDIVE DYSKINESIA [None]
